FAERS Safety Report 26098036 (Version 1)
Quarter: 2025Q4

REPORT INFORMATION
  Report Type: Spontaneous
  Country: US (occurrence: US)
  Receive Date: 20251127
  Receipt Date: 20251127
  Transmission Date: 20260117
  Serious: Yes (Death, Hospitalization, Other)
  Sender: ALEMBIC
  Company Number: US-ALEMBIC PHARMACUETICALS LIMITED-2025SCAL001573

PATIENT

DRUGS (6)
  1. CYCLOPHOSPHAMIDE [Suspect]
     Active Substance: CYCLOPHOSPHAMIDE
     Indication: Diffuse large B-cell lymphoma
     Dosage: UNK
     Route: 065
  2. DOXORUBICIN HYDROCHLORIDE [Suspect]
     Active Substance: DOXORUBICIN HYDROCHLORIDE
     Indication: Diffuse large B-cell lymphoma
     Dosage: UNK
     Route: 065
  3. METHOTREXATE [Suspect]
     Active Substance: METHOTREXATE
     Indication: Myositis
     Dosage: UNK
     Route: 065
  4. RITUXIMAB [Suspect]
     Active Substance: RITUXIMAB
     Indication: Diffuse large B-cell lymphoma
     Dosage: UNK
     Route: 065
  5. PREDNISONE [Suspect]
     Active Substance: PREDNISONE
     Indication: Diffuse large B-cell lymphoma
     Dosage: UNK
     Route: 065
  6. VINCRISTINE SULFATE [Suspect]
     Active Substance: VINCRISTINE SULFATE
     Indication: Diffuse large B-cell lymphoma
     Dosage: UNK
     Route: 065

REACTIONS (26)
  - Disseminated intravascular coagulation [Fatal]
  - Multiple organ dysfunction syndrome [Fatal]
  - Stress cardiomyopathy [Unknown]
  - Clostridium difficile infection [Unknown]
  - Deep vein thrombosis [Unknown]
  - Ileus [Unknown]
  - Sepsis [Fatal]
  - Haemophagocytic lymphohistiocytosis [Unknown]
  - Confusional state [Unknown]
  - Asthenia [Unknown]
  - Hepatic lesion [Unknown]
  - Pyrexia [Unknown]
  - Hyponatraemia [Unknown]
  - Somnolence [Unknown]
  - Tachycardia [Unknown]
  - Hypotension [Unknown]
  - Speech latency [Unknown]
  - Saccadic eye movement disorder [Unknown]
  - Muscular weakness [Unknown]
  - Hypokinesia [Unknown]
  - Diffuse large B-cell lymphoma [Unknown]
  - C-reactive protein increased [Unknown]
  - Cachexia [Unknown]
  - Pleural effusion [Unknown]
  - Ascites [Unknown]
  - Lymphoproliferative disorder [Unknown]
